FAERS Safety Report 10946819 (Version 5)
Quarter: 2015Q4

REPORT INFORMATION
  Report Type: Spontaneous
  Country: US (occurrence: US)
  Receive Date: 20150323
  Receipt Date: 20151005
  Transmission Date: 20160304
  Serious: No
  Sender: FDA-Public Use
  Company Number: US-PFIZER INC-2015097121

PATIENT
  Age: 65 Year
  Sex: Female
  Weight: 73 kg

DRUGS (12)
  1. LYRICA [Suspect]
     Active Substance: PREGABALIN
     Indication: FIBROMYALGIA
     Dosage: 150 MG, 2X/DAY(1 CAPSULE BID 90 DAYS)
     Route: 048
  2. LYRICA [Suspect]
     Active Substance: PREGABALIN
     Indication: DIABETIC NEUROPATHY
     Dosage: 150 MG, 2X/DAY
     Route: 048
  3. AGGRENOX [Concomitant]
     Active Substance: ASPIRIN\DIPYRIDAMOLE
     Indication: TRANSIENT ISCHAEMIC ATTACK
     Dosage: ([ACETYLSALICYLIC ACID 25 MG]/[DIPYRIDAMOLE 200MG]), 2X/DAY
  4. VALSARTAN HCT [Concomitant]
     Active Substance: HYDROCHLOROTHIAZIDE\VALSARTAN
     Indication: BLOOD PRESSURE MEASUREMENT
     Dosage: ([HYDROCHLOROTHIAZIDE 320MG]/[VALSARTAN 12.5MG]), DAILY
  5. LOTREL [Concomitant]
     Active Substance: AMLODIPINE BESYLATE\BENAZEPRIL HYDROCHLORIDE
     Indication: HYPERTENSION
     Dosage: ([AMLODIPINE 5MG]/[BENAZEPRIL HYDROCHLORIDE 40MG]), 1X/DAY
  6. GLIPIZIDE. [Concomitant]
     Active Substance: GLIPIZIDE
     Indication: DIABETES MELLITUS
     Dosage: 10 MG, 1X/DAY
  7. BAYER ASPIRIN [Concomitant]
     Active Substance: ASPIRIN
     Dosage: UNK, 1X/DAY
  8. SERZONE [Concomitant]
     Active Substance: NEFAZODONE HYDROCHLORIDE
     Indication: DEPRESSION
     Dosage: 200 MG, 2X/DAY
  9. SERZONE [Concomitant]
     Active Substance: NEFAZODONE HYDROCHLORIDE
     Indication: ANXIETY
  10. NORTRIPTYLIN [Concomitant]
     Active Substance: NORTRIPTYLINE
     Indication: SLEEP DISORDER
     Dosage: 75 MG, 1X/DAY
  11. JANUMET [Concomitant]
     Active Substance: METFORMIN HYDROCHLORIDE\SITAGLIPTIN PHOSPHATE
     Indication: DIABETES MELLITUS
     Dosage: ([METFORMIN HYDROCHLORIDE 50 MG]/[SITAGLIPTIN PHOSPHATE MONOHYDRATE 1000MG]), 1X/DAY
  12. MORPHINE [Concomitant]
     Active Substance: MORPHINE
     Indication: BACK PAIN
     Dosage: 15MG TWO A DAY, AS NEEDED

REACTIONS (6)
  - Pain in extremity [Recovered/Resolved]
  - Sleep disorder [Recovered/Resolved]
  - Hypoaesthesia [Recovered/Resolved]
  - Back pain [Recovered/Resolved]
  - Hypertension [Not Recovered/Not Resolved]
  - Insomnia [Recovered/Resolved]
